FAERS Safety Report 9009390 (Version 2)
Quarter: 2013Q1

REPORT INFORMATION
  Report Type: Report from Study
  Country: DE (occurrence: DE)
  Receive Date: 20130111
  Receipt Date: 20130117
  Transmission Date: 20140127
  Serious: Yes (Death, Life-Threatening)
  Sender: FDA-Public Use
  Company Number: DE-GENZYME-CLOF-1002473

PATIENT
  Age: 55 Year
  Sex: Male
  Weight: 81 kg

DRUGS (5)
  1. EVOLTRA [Suspect]
     Indication: ACUTE MYELOID LEUKAEMIA
     Dosage: 60 MG, QD
     Route: 042
     Dates: start: 20121207
  2. CYTARABINE [Suspect]
     Indication: PRODUCT USED FOR UNKNOWN INDICATION
     Dosage: UNK
     Route: 065
  3. AMPHOTERICIN B, LIPOSOME [Concomitant]
     Indication: ASPERGILLUS INFECTION
     Dosage: UNK
     Route: 042
     Dates: start: 20121219
  4. MEROPENEM [Concomitant]
     Indication: INFECTION
     Dosage: UNK
     Route: 042
     Dates: start: 20121215
  5. TARGOCID [Concomitant]
     Indication: INFECTION
     Dosage: UNK
     Route: 042
     Dates: start: 20121215

REACTIONS (3)
  - Acute respiratory distress syndrome [Fatal]
  - Microangiopathic haemolytic anaemia [Not Recovered/Not Resolved]
  - Venoocclusive liver disease [Fatal]
